FAERS Safety Report 9527794 (Version 1)
Quarter: 2013Q1

REPORT INFORMATION
  Report Type: Spontaneous
  Country: US (occurrence: None)
  Receive Date: 20130314
  Receipt Date: 20130314
  Transmission Date: 20140127
  Serious: No
  Sender: FDA-Public Use
  Company Number: 1211USA008317

PATIENT
  Age: 59 Year
  Sex: Male

DRUGS (3)
  1. PEGINTRON [Suspect]
     Indication: HEPATITIS C
     Dosage: REDIPEN
     Dates: start: 20120720, end: 20121116
  2. RIBAVIRIN [Suspect]
     Indication: HEPATITIS C
     Dates: start: 20120720, end: 20121116
  3. VICTRELIS [Suspect]
     Indication: HEPATITIS C
     Dates: start: 20120817, end: 20121116

REACTIONS (3)
  - Anaemia [None]
  - Dry mouth [None]
  - Pruritus [None]
